FAERS Safety Report 15694019 (Version 1)
Quarter: 2018Q4

REPORT INFORMATION
  Report Type: Spontaneous
  Country: GB (occurrence: GB)
  Receive Date: 20181206
  Receipt Date: 20181206
  Transmission Date: 20190205
  Serious: Yes (Other)
  Sender: FDA-Public Use
  Company Number: GB-SA-2018SA329379

PATIENT
  Age: 50 Year
  Sex: Female
  Weight: 103 kg

DRUGS (18)
  1. ZOPICLONE [Concomitant]
     Active Substance: ZOPICLONE
  2. VENLAFAXINE [Concomitant]
     Active Substance: VENLAFAXINE HYDROCHLORIDE
     Dosage: PROLONGED RELEASE
  3. AMITRIPTYLINE HYDROCHLORIDE. [Concomitant]
     Active Substance: AMITRIPTYLINE HYDROCHLORIDE
  4. URSODEOXYCHOLIC ACID [Concomitant]
     Active Substance: URSODIOL
  5. AMLODIPINE [Concomitant]
     Active Substance: AMLODIPINE BESYLATE
  6. BISOPROLOL FUMARATE. [Concomitant]
     Active Substance: BISOPROLOL FUMARATE
  7. PARACETAMOL [Concomitant]
     Active Substance: ACETAMINOPHEN
  8. GLICLAZIDE [Concomitant]
     Active Substance: GLICLAZIDE
  9. ATORVASTATIN CALCIUM. [Concomitant]
     Active Substance: ATORVASTATIN CALCIUM
  10. TRAMADOL HYDROCHLORIDE. [Concomitant]
     Active Substance: TRAMADOL HYDROCHLORIDE
  11. FOLIC ACID. [Concomitant]
     Active Substance: FOLIC ACID
  12. METFORMIN HYDROCHLORIDE. [Concomitant]
     Active Substance: METFORMIN HYDROCHLORIDE
  13. RIFAMPICIN [Suspect]
     Active Substance: RIFAMPIN
     Indication: PRURITUS
     Dosage: 150 G
     Route: 048
     Dates: start: 20181101, end: 20181107
  14. ALOGLIPTIN BENZOATE [Concomitant]
     Active Substance: ALOGLIPTIN BENZOATE
  15. COLECALCIFEROL [Concomitant]
     Active Substance: CHOLECALCIFEROL
  16. RAMIPRIL. [Concomitant]
     Active Substance: RAMIPRIL
  17. IBUPROFEN. [Concomitant]
     Active Substance: IBUPROFEN
  18. FEXOFENADINE HYDROCHLORIDE. [Concomitant]
     Active Substance: FEXOFENADINE HYDROCHLORIDE

REACTIONS (11)
  - Diarrhoea [Recovering/Resolving]
  - Asthenia [Unknown]
  - Abnormal loss of weight [Unknown]
  - Depression [Unknown]
  - Dizziness [Unknown]
  - Malaise [Unknown]
  - Headache [Unknown]
  - Hyperhidrosis [Unknown]
  - Feeling abnormal [Unknown]
  - Sleep deficit [Recovering/Resolving]
  - Suicidal ideation [Unknown]

NARRATIVE: CASE EVENT DATE: 20181101
